FAERS Safety Report 7290452-4 (Version None)
Quarter: 2011Q1

REPORT INFORMATION
  Report Type: 
  Country: None (occurrence: None)
  Receive Date: 20110214
  Receipt Date: 20110211
  Transmission Date: 20110831
  Serious: Yes (Other)
  Sender: FDA-Public Use
  Company Number: US-PFIZER INC-2011031574

PATIENT
  Sex: Female
  Weight: 90.703 kg

DRUGS (3)
  1. METOPROLOL [Concomitant]
     Indication: HYPERTENSION
     Dosage: UNK
  2. FIBERCON [Suspect]
     Indication: DIARRHOEA
     Dosage: UNK, 2 TABLETS ONCE/DAY
     Route: 048
     Dates: start: 20100901
  3. OMEPRAZOLE [Concomitant]
     Dosage: UNK

REACTIONS (2)
  - DIARRHOEA [None]
  - PULMONARY THROMBOSIS [None]
